FAERS Safety Report 22378160 (Version 1)
Quarter: 2023Q2

REPORT INFORMATION
  Report Type: Report from Study
  Country: CN (occurrence: CN)
  Receive Date: 20230529
  Receipt Date: 20230529
  Transmission Date: 20230721
  Serious: Yes (Other)
  Sender: FDA-Public Use
  Company Number: CN-002147023-NVSC2023CN120007

PATIENT
  Age: 50 Year
  Sex: Male
  Weight: 80 kg

DRUGS (2)
  1. COSENTYX [Suspect]
     Active Substance: SECUKINUMAB
     Indication: Psoriasis
     Dosage: 300 MG, QMO (2 INJECTIONS)
     Route: 058
     Dates: start: 20220201
  2. COSENTYX [Suspect]
     Active Substance: SECUKINUMAB
     Dosage: 600 MG (4 INJECTIONS)
     Route: 058
     Dates: start: 202304

REACTIONS (4)
  - Hyperpyrexia [Unknown]
  - SARS-CoV-2 test positive [Unknown]
  - Drug resistance [Unknown]
  - Drug effect less than expected [Not Recovered/Not Resolved]

NARRATIVE: CASE EVENT DATE: 20221201
